FAERS Safety Report 20224059 (Version 2)
Quarter: 2022Q1

REPORT INFORMATION
  Report Type: Report from Study
  Country: US (occurrence: US)
  Receive Date: 20211223
  Receipt Date: 20220106
  Transmission Date: 20220423
  Serious: Yes (Hospitalization, Other)
  Sender: FDA-Public Use
  Company Number: US-TAKEDA-2021TUS075253

PATIENT
  Age: 80 Year
  Sex: Female
  Weight: 73 kg

DRUGS (2)
  1. MOBOCERTINIB [Suspect]
     Active Substance: MOBOCERTINIB
     Indication: Lung neoplasm malignant
     Dosage: 40 MILLIGRAM, QD
     Route: 048
     Dates: start: 20211123
  2. MOBOCERTINIB [Suspect]
     Active Substance: MOBOCERTINIB
     Dosage: 160 MILLIGRAM, QD
     Route: 048
     Dates: end: 20211215

REACTIONS (16)
  - Haemorrhagic stroke [Recovered/Resolved]
  - Acute kidney injury [Recovering/Resolving]
  - Diarrhoea [Recovering/Resolving]
  - Loss of consciousness [Recovered/Resolved]
  - Dry mouth [Unknown]
  - Constipation [Unknown]
  - Ocular hyperaemia [Unknown]
  - Tongue erythema [Recovering/Resolving]
  - Lip erythema [Recovering/Resolving]
  - Eye irritation [Recovering/Resolving]
  - Fatigue [Recovering/Resolving]
  - Dry eye [Unknown]
  - Rash [Recovering/Resolving]
  - Dry skin [Unknown]
  - Vomiting [Recovering/Resolving]
  - Nausea [Recovering/Resolving]

NARRATIVE: CASE EVENT DATE: 20211123
